FAERS Safety Report 9441946 (Version 1)
Quarter: 2013Q3

REPORT INFORMATION
  Report Type: Report from Study
  Country: DE (occurrence: DE)
  Receive Date: 20130806
  Receipt Date: 20130806
  Transmission Date: 20140515
  Serious: Yes (Death, Life-Threatening, Hospitalization, Other)
  Sender: FDA-Public Use
  Company Number: DE-MERCK-1307DEU015258

PATIENT
  Age: 70 Year
  Sex: Female
  Weight: 92 kg

DRUGS (6)
  1. JANUMET [Suspect]
     Indication: DIABETES MELLITUS
     Dosage: TOTAL DAILY DOSE:2000/50 MG
     Route: 048
     Dates: start: 20120929, end: 201303
  2. JANUVIA [Suspect]
     Indication: DIABETES MELLITUS
     Dosage: 100 MG, QD
     Route: 048
     Dates: start: 201303
  3. FUROSEMIDE [Concomitant]
     Dosage: 20 MG, UNK
  4. EZETROL [Concomitant]
  5. CANDESARTAN CILEXETIL (+) HYDROCHLOROTHIAZIDE [Concomitant]
     Dosage: TOTAL DAILY DOSE: 32MG/25MG
  6. BISOPROLOL [Concomitant]
     Dosage: UNK
     Dates: start: 201303

REACTIONS (6)
  - Diabetic ketoacidosis [Not Recovered/Not Resolved]
  - Diabetes mellitus [Not Recovered/Not Resolved]
  - Diarrhoea [Not Recovered/Not Resolved]
  - Polymyositis [Not Recovered/Not Resolved]
  - General physical health deterioration [Unknown]
  - Asphyxia [Fatal]
